FAERS Safety Report 5454046-5 (Version None)
Quarter: 2007Q3

REPORT INFORMATION
  Report Type: 
  Country: None (occurrence: None)
  Receive Date: 20070917
  Receipt Date: 20070305
  Transmission Date: 20080115
  Serious: Yes (Hospitalization, Disabling)
  Sender: FDA-Public Use
  Company Number: US-ASTRAZENECA-2006UW07035

PATIENT
  Sex: Female
  Weight: 90.9 kg

DRUGS (5)
  1. SEROQUEL [Suspect]
     Indication: SCHIZOPHRENIA
     Dosage: 100-200 MG
     Route: 048
     Dates: start: 20020710, end: 20041201
  2. RISPERDAL [Suspect]
     Dates: start: 20030701, end: 20041201
  3. ZYPREXA [Suspect]
     Dates: start: 20010401, end: 20020401
  4. HALDOL [Concomitant]
     Dates: start: 20050201, end: 20060501
  5. THORAZINE [Concomitant]

REACTIONS (2)
  - DIABETES MELLITUS [None]
  - WEIGHT INCREASED [None]
